FAERS Safety Report 18575212 (Version 2)
Quarter: 2020Q4

REPORT INFORMATION
  Report Type: Spontaneous
  Country: GB (occurrence: GB)
  Receive Date: 20201203
  Receipt Date: 20201215
  Transmission Date: 20210114
  Serious: Yes (Other)
  Sender: FDA-Public Use
  Company Number: GB-PFIZER INC-2020472651

PATIENT
  Age: 49 Year
  Sex: Female
  Weight: 120 kg

DRUGS (19)
  1. ATRACURIUM BESILATE [Concomitant]
     Active Substance: ATRACURIUM BESYLATE
     Dosage: UNK
  2. TAZOCIN [Concomitant]
     Active Substance: PIPERACILLIN SODIUM\TAZOBACTAM SODIUM
     Dosage: UNK
  3. DEXAMETHASONE. [Concomitant]
     Active Substance: DEXAMETHASONE
     Dosage: UNK
  4. ENOXAPARIN SODIUM. [Concomitant]
     Active Substance: ENOXAPARIN SODIUM
     Dosage: UNK
  5. PREDNISOLONE. [Concomitant]
     Active Substance: PREDNISOLONE
     Dosage: UNK
  6. MONTELUKAST SODIUM. [Concomitant]
     Active Substance: MONTELUKAST SODIUM
     Dosage: UNK
  7. TINZAPARIN SODIUM [Concomitant]
     Active Substance: TINZAPARIN SODIUM
     Dosage: UNK
  8. ESCITALOPRAM [Concomitant]
     Active Substance: ESCITALOPRAM OXALATE
     Dosage: UNK
  9. MEROPENEM TRIHYDRATE [Concomitant]
     Active Substance: MEROPENEM
     Dosage: UNK
  10. FUROSEMIDE SODIUM [Concomitant]
     Active Substance: FUROSEMIDE SODIUM
     Dosage: UNK
  11. METOCLOPRAMIDE. [Concomitant]
     Active Substance: METOCLOPRAMIDE
     Dosage: UNK
  12. POTASSIUM CHLORIDE. [Concomitant]
     Active Substance: POTASSIUM CHLORIDE
     Dosage: UNK
  13. CASSIA FISTULA/FOENICULUM VULGARE/GLYCYRRHIZA GLABRA/PLANTAGO OVATA/SENNA SPP./TERMINALIA CHEBULA [Concomitant]
     Dosage: UNK
  14. FOSTAIR DPI [Concomitant]
     Dosage: UNK
  15. LANSOPRAZOLE. [Concomitant]
     Active Substance: LANSOPRAZOLE
     Dosage: UNK
  16. VANCOMYCIN [Suspect]
     Active Substance: VANCOMYCIN
     Dosage: 3 G (3 G OVER TWENTY-FOUR HOURS)
     Route: 042
     Dates: start: 20201106, end: 20201109
  17. DIAZEPAM. [Concomitant]
     Active Substance: DIAZEPAM
     Dosage: UNK
  18. LACTULOSE. [Concomitant]
     Active Substance: LACTULOSE
     Dosage: UNK
  19. PARACETAMOL [Concomitant]
     Active Substance: ACETAMINOPHEN
     Dosage: UNK

REACTIONS (2)
  - Nephropathy toxic [Unknown]
  - Renal failure [Unknown]

NARRATIVE: CASE EVENT DATE: 20201106
